FAERS Safety Report 8016309-9 (Version None)
Quarter: 2011Q4

REPORT INFORMATION
  Report Type: 
  Country: None (occurrence: None)
  Receive Date: 20111227
  Receipt Date: 20111212
  Transmission Date: 20120403
  Serious: Yes (Hospitalization)
  Sender: FDA-Public Use
  Company Number: IND1-ES-2011-0056

PATIENT
  Age: 38 Year
  Sex: Female

DRUGS (3)
  1. DEPRAX (TRAZODONE HYDROCHLORIDE) (TABLETS) (TRAZODONE HYDROCHLORIDE) [Concomitant]
  2. NOCTAMID (LORMETAZEPAM) (TABLETS) (LORMETAZEPAM) [Concomitant]
  3. INDOMETHACIN [Suspect]
     Indication: PRODUCT USED FOR UNKNOWN INDICATION
     Dosage: 75 MG (75 MG,1 IN 1 D),ORAL
     Route: 048
     Dates: start: 20110930, end: 20111004

REACTIONS (1)
  - ANAPHYLACTIC SHOCK [None]
